FAERS Safety Report 6358273-4 (Version None)
Quarter: 2009Q3

REPORT INFORMATION
  Report Type: 
  Country: None (occurrence: None)
  Receive Date: 20090916
  Receipt Date: 20090908
  Transmission Date: 20100115
  Serious: Yes (Other)
  Sender: FDA-Public Use
  Company Number: US-WYE-H10885309

PATIENT
  Age: 75 Year
  Sex: Female
  Weight: 61.74 kg

DRUGS (4)
  1. CHAPSTICK LIP BALM [Suspect]
     Route: 061
     Dates: start: 20090907, end: 20090907
  2. GLUCOSAMINE HYDROCHLORIDE/CHONDROITIN SULFATE [Concomitant]
     Dosage: UNKNOWN
     Route: 048
  3. ERGOCALCIFEROL [Concomitant]
     Dosage: UNKNOWN
     Route: 048
  4. AMLODIPINE [Concomitant]
     Dosage: UNKNOWN
     Route: 048

REACTIONS (4)
  - ASTHENIA [None]
  - HYPERSENSITIVITY [None]
  - PRURITUS [None]
  - TREMOR [None]
